FAERS Safety Report 12248477 (Version 1)
Quarter: 2016Q2

REPORT INFORMATION
  Report Type: Spontaneous
  Country: IT (occurrence: IT)
  Receive Date: 20160408
  Receipt Date: 20160408
  Transmission Date: 20160815
  Serious: Yes (Death)
  Sender: FDA-Public Use
  Company Number: IT-ELI_LILLY_AND_COMPANY-IT201604000652

PATIENT
  Age: 55 Year
  Sex: Male
  Weight: 88 kg

DRUGS (7)
  1. ACICLIN [Concomitant]
     Active Substance: ACYCLOVIR
     Dosage: 800 MG, UNKNOWN
     Route: 048
     Dates: start: 20160323, end: 20160326
  2. ALLOPURINOL. [Concomitant]
     Active Substance: ALLOPURINOL
     Dosage: 300 MG, UNKNOWN
     Route: 048
     Dates: start: 20160324, end: 20160326
  3. GEMZAR [Suspect]
     Active Substance: GEMCITABINE HYDROCHLORIDE
     Indication: NON-HODGKIN^S LYMPHOMA
     Dosage: 2000 MG, CYCLICAL
     Route: 042
     Dates: start: 20160324
  4. LANSOPRAZOLE. [Concomitant]
     Active Substance: LANSOPRAZOLE
     Dosage: 30 MG, UNKNOWN
     Route: 048
     Dates: start: 20160324, end: 20160326
  5. BACTRIM [Concomitant]
     Active Substance: SULFAMETHOXAZOLE\TRIMETHOPRIM
     Dosage: 2 DF, UNKNOWN
     Route: 048
     Dates: start: 20160323, end: 20160326
  6. NAVELBINE [Suspect]
     Active Substance: VINORELBINE TARTRATE
     Indication: NON-HODGKIN^S LYMPHOMA
     Dosage: 500 MG, CYCLICAL
     Route: 042
     Dates: start: 20160324
  7. CLEXANE T [Concomitant]
     Active Substance: ENOXAPARIN SODIUM
     Dosage: 6000 IU, UNKNOWN
     Route: 058
     Dates: start: 20160324, end: 20160326

REACTIONS (4)
  - Off label use [Unknown]
  - Hypotension [Fatal]
  - Respiratory failure [Fatal]
  - Asthenia [Fatal]

NARRATIVE: CASE EVENT DATE: 20160326
